FAERS Safety Report 7415548-5 (Version None)
Quarter: 2011Q2

REPORT INFORMATION
  Report Type: 
  Country: None (occurrence: None)
  Receive Date: 20110414
  Receipt Date: 20110404
  Transmission Date: 20111010
  Serious: Yes (Other)
  Sender: FDA-Public Use
  Company Number: CA-SANOFI-AVENTIS-2011SA020451

PATIENT
  Age: 26 Year
  Sex: Female

DRUGS (2)
  1. LANTUS [Suspect]
     Indication: TYPE 1 DIABETES MELLITUS
     Dates: start: 20101001
  2. NOVORAPID [Concomitant]
     Indication: TYPE 1 DIABETES MELLITUS

REACTIONS (2)
  - MENTAL STATUS CHANGES [None]
  - BLOOD GLUCOSE FLUCTUATION [None]
